FAERS Safety Report 10958377 (Version 1)
Quarter: 2015Q1

REPORT INFORMATION
  Report Type: Report from Study
  Country: US (occurrence: US)
  Receive Date: 20150326
  Receipt Date: 20150326
  Transmission Date: 20150721
  Serious: Yes (Hospitalization)
  Sender: FDA-Public Use
  Company Number: US-GLAXOSMITHKLINE-US2015GSK034581

PATIENT
  Age: 60 Year
  Sex: Male
  Weight: 84.35 kg

DRUGS (13)
  1. AMLODIPINE [Concomitant]
     Active Substance: AMLODIPINE BESYLATE
  2. DABRAFENIB [Suspect]
     Active Substance: DABRAFENIB
     Indication: NEOPLASM MALIGNANT
     Dosage: 150 MG, BID
     Route: 048
     Dates: start: 20150105, end: 20150107
  3. TADALAFIL [Concomitant]
     Active Substance: TADALAFIL
  4. PAZOPANIB [Suspect]
     Active Substance: PAZOPANIB
     Indication: NEOPLASM MALIGNANT
     Dosage: 800 MG, QD
     Route: 048
     Dates: start: 20150106, end: 20150107
  5. DENOSUMAB [Concomitant]
     Active Substance: DENOSUMAB
  6. ASPIRIN+CITRIC ACID+NA CO3+NA HCO3 [Concomitant]
  7. LYRICA [Concomitant]
     Active Substance: PREGABALIN
     Indication: NEURALGIA
  8. LACTULOSE. [Concomitant]
     Active Substance: LACTULOSE
  9. PROCHLORPERAZINE. [Concomitant]
     Active Substance: PROCHLORPERAZINE
  10. SENNA [Concomitant]
     Active Substance: SENNA LEAF\SENNOSIDES\SENNOSIDES A AND B
  11. RAMIPRIL. [Concomitant]
     Active Substance: RAMIPRIL
  12. ACETAMINOPHEN + HYDROCODONE [Concomitant]
     Active Substance: ACETAMINOPHEN\HYDROCODONE
  13. TAMSULOSIN [Concomitant]
     Active Substance: TAMSULOSIN

REACTIONS (1)
  - Recall phenomenon [Recovering/Resolving]

NARRATIVE: CASE EVENT DATE: 20150108
